FAERS Safety Report 6720284-4 (Version None)
Quarter: 2010Q2

REPORT INFORMATION
  Report Type: 
  Country: None (occurrence: None)
  Receive Date: 20100511
  Receipt Date: 20100329
  Transmission Date: 20101027
  Serious: Yes (Disabling)
  Sender: FDA-Public Use
  Company Number: PHHY2010MX19044

PATIENT
  Sex: Female

DRUGS (4)
  1. EXFORGE [Suspect]
     Indication: HYPERTENSION
     Dosage: 1 TABLET (160/5 MG) DAILY
     Route: 048
  2. MULTI-VITAMINS [Concomitant]
  3. LASIX [Concomitant]
  4. DOXIUM [Concomitant]

REACTIONS (3)
  - FATIGUE [None]
  - HEARING IMPAIRED [None]
  - OEDEMA PERIPHERAL [None]
